FAERS Safety Report 9374717 (Version 2)
Quarter: 2013Q3

REPORT INFORMATION
  Report Type: Spontaneous
  Country: US (occurrence: US)
  Receive Date: 20130628
  Receipt Date: 20130808
  Transmission Date: 20140515
  Serious: Yes (Other)
  Sender: FDA-Public Use
  Company Number: US-JNJFOC-20130610275

PATIENT
  Sex: Female

DRUGS (4)
  1. TYLENOL SINUS CONGESTION + PAIN DAYTIME COOL BURST [Suspect]
     Indication: SINUS CONGESTION
     Dosage: 1 TABLET JUST ONCE
     Route: 048
     Dates: start: 20130614
  2. LISINOPRIL [Concomitant]
     Indication: HYPERTENSION
     Route: 065
  3. ATORVASTATIN [Concomitant]
     Indication: BLOOD CHOLESTEROL INCREASED
  4. METFORMIN [Concomitant]
     Indication: DIABETES MELLITUS
     Route: 065

REACTIONS (4)
  - Blood pressure increased [Recovered/Resolved]
  - Drug ineffective [Unknown]
  - Feeling abnormal [Recovered/Resolved]
  - Product physical issue [Unknown]
